FAERS Safety Report 10467194 (Version 3)
Quarter: 2014Q3

REPORT INFORMATION
  Report Type: Spontaneous
  Country: US (occurrence: US)
  Receive Date: 20140922
  Receipt Date: 20140929
  Transmission Date: 20150326
  Serious: Yes (Hospitalization, Other)
  Sender: FDA-Public Use
  Company Number: US-MERCK-1409USA009727

PATIENT
  Age: 60 Year
  Sex: Male

DRUGS (1)
  1. INVANZ [Suspect]
     Active Substance: ERTAPENEM SODIUM
     Indication: URINARY TRACT INFECTION

REACTIONS (4)
  - Convulsion [Unknown]
  - Endotracheal intubation [Unknown]
  - Tremor [Unknown]
  - Adverse drug reaction [Unknown]
